FAERS Safety Report 9570819 (Version 3)
Quarter: 2013Q4

REPORT INFORMATION
  Report Type: Spontaneous
  Country: TR (occurrence: TR)
  Receive Date: 20131001
  Receipt Date: 20131029
  Transmission Date: 20140711
  Serious: Yes (Death, Hospitalization)
  Sender: FDA-Public Use
  Company Number: TR-ALEXION PHARMACEUTICALS INC.-A201302418

PATIENT
  Age: 1 Year
  Sex: Male

DRUGS (2)
  1. SOLIRIS 300MG [Suspect]
     Indication: HAEMOLYTIC URAEMIC SYNDROME
     Dosage: 300 MG, QW
     Route: 042
     Dates: start: 20130315, end: 20130322
  2. SOLIRIS 300MG [Suspect]
     Dosage: 300 MG, Q3 WEEKS
     Route: 042
     Dates: start: 20130412, end: 20130906

REACTIONS (1)
  - Respiratory failure [Fatal]
